FAERS Safety Report 6754297-3 (Version None)
Quarter: 2010Q2

REPORT INFORMATION
  Report Type: 
  Country: None (occurrence: None)
  Receive Date: 20100520
  Receipt Date: 20090925
  Transmission Date: 20101027
  Serious: Yes (Other)
  Sender: FDA-Public Use
  Company Number: 2009275375

PATIENT
  Age: 56 Year
  Sex: Female

DRUGS (8)
  1. PROVERA [Suspect]
     Indication: HORMONE REPLACEMENT THERAPY
     Dosage: , ORAL
     Route: 048
  2. DEPO-PROVERA [Suspect]
     Indication: HORMONE REPLACEMENT THERAPY
  3. ESTRADEM (ESTRADIOL) TRANSDERMAL PATCH [Suspect]
     Indication: HORMONE REPLACEMENT THERAPY
  4. CLIMARA (ESTRADIOL) TRANSDERMAL PATCH [Suspect]
     Indication: HORMONE REPLACEMENT THERAPY
     Dates: start: 19950101, end: 19970101
  5. CYCRIN [Suspect]
     Indication: HORMONE REPLACEMENT THERAPY
  6. PREMPRO [Suspect]
     Indication: HORMONE REPLACEMENT THERAPY
     Dates: start: 19970101, end: 20000101
  7. VIOXX [Concomitant]
  8. PAXIL [Concomitant]

REACTIONS (1)
  - BREAST CANCER FEMALE [None]
